FAERS Safety Report 12557772 (Version 3)
Quarter: 2016Q3

REPORT INFORMATION
  Report Type: Report from Study
  Country: US (occurrence: US)
  Receive Date: 20160714
  Receipt Date: 20160915
  Transmission Date: 20161109
  Serious: Yes (Death, Hospitalization, Other)
  Sender: FDA-Public Use
  Company Number: US-BAYER-2016-110749

PATIENT
  Sex: Female

DRUGS (4)
  1. NEXAVAR [Suspect]
     Active Substance: SORAFENIB
     Indication: HEPATOCELLULAR CARCINOMA
     Dosage: UNK
     Dates: start: 2016, end: 2016
  2. NEXAVAR [Suspect]
     Active Substance: SORAFENIB
     Indication: HEPATOCELLULAR CARCINOMA
     Dosage: 200 MG, QD
     Route: 048
     Dates: start: 20160603
  3. NEXAVAR [Suspect]
     Active Substance: SORAFENIB
     Indication: HEPATOCELLULAR CARCINOMA
     Dosage: 200 MG, QD
     Route: 048
     Dates: start: 2016, end: 2016
  4. NEXAVAR [Suspect]
     Active Substance: SORAFENIB
     Indication: HEPATOCELLULAR CARCINOMA
     Dosage: 400 MG, BID
     Route: 048
     Dates: start: 20160531, end: 2016

REACTIONS (9)
  - Fatigue [Recovering/Resolving]
  - Death [Fatal]
  - Abdominal pain [Recovering/Resolving]
  - Vomiting [None]
  - Toxicity to various agents [None]
  - Constipation [None]
  - Nausea [None]
  - Eating disorder [None]
  - Decreased activity [Not Recovered/Not Resolved]

NARRATIVE: CASE EVENT DATE: 2016
